FAERS Safety Report 15813396 (Version 2)
Quarter: 2019Q1

REPORT INFORMATION
  Report Type: Spontaneous
  Country: ES (occurrence: ES)
  Receive Date: 20190111
  Receipt Date: 20190320
  Transmission Date: 20190417
  Serious: Yes (Other)
  Sender: FDA-Public Use
  Company Number: ES-BAYER-2019-006733

PATIENT
  Age: 72 Year
  Sex: Male

DRUGS (5)
  1. XOFIGO [Suspect]
     Active Substance: RADIUM RA-223 DICHLORIDE
     Indication: METASTASES TO BONE
     Dosage: UNK
     Dates: start: 20150924, end: 20150924
  2. FENTANYL. [Concomitant]
     Active Substance: FENTANYL
     Indication: GROIN PAIN
     Dosage: 50 MCG/H
  3. XOFIGO [Suspect]
     Active Substance: RADIUM RA-223 DICHLORIDE
     Indication: PROSTATE CANCER
     Dosage: UNK
     Dates: start: 20151027, end: 20151027
  4. XOFIGO [Suspect]
     Active Substance: RADIUM RA-223 DICHLORIDE
     Indication: PROSTATE CANCER
     Dosage: UNK
     Dates: start: 20150827, end: 20150827
  5. FENTANYL. [Concomitant]
     Active Substance: FENTANYL
     Indication: GROIN PAIN
     Dosage: 75 MCG/H - PRIOR TO XOFIGO TREATMENT

REACTIONS (8)
  - Hilar lymphadenopathy [None]
  - Prostate cancer [None]
  - Blood alkaline phosphatase increased [None]
  - Prostatic specific antigen increased [None]
  - Pain [None]
  - Metastases to spine [None]
  - Pulmonary mass [None]
  - Back pain [None]

NARRATIVE: CASE EVENT DATE: 201509
